FAERS Safety Report 4836281-X (Version None)
Quarter: 2005Q4

REPORT INFORMATION
  Report Type: 
  Country: None (occurrence: None)
  Receive Date: 20051123
  Receipt Date: 20051122
  Transmission Date: 20060501
  Serious: Yes (Death)
  Sender: FDA-Public Use
  Company Number: BR-BRISTOL-MYERS SQUIBB COMPANY-13192018

PATIENT
  Sex: Female

DRUGS (2)
  1. CORGARD [Suspect]
     Indication: HYPERTENSION
     Route: 048
     Dates: start: 20051121, end: 20051121
  2. CORGARD [Suspect]
     Indication: HEART RATE INCREASED
     Route: 048
     Dates: start: 20051121, end: 20051121

REACTIONS (1)
  - DEATH [None]
